FAERS Safety Report 6193933-X (Version None)
Quarter: 2009Q2

REPORT INFORMATION
  Report Type: 
  Country: None (occurrence: None)
  Receive Date: 20090518
  Receipt Date: 20090507
  Transmission Date: 20091009
  Serious: Yes (Hospitalization, Other)
  Sender: FDA-Public Use
  Company Number: PHHY2009MX17986

PATIENT
  Sex: Male

DRUGS (1)
  1. DIOVAN HCT [Suspect]
     Indication: HYPERTENSION
     Dosage: 160/25 MG
     Dates: start: 20010701, end: 20090311

REACTIONS (10)
  - ATRIOVENTRICULAR BLOCK [None]
  - BRADYCARDIA [None]
  - CARDIAC FAILURE [None]
  - CARDIAC PACEMAKER INSERTION [None]
  - CHEST PAIN [None]
  - DYSPNOEA [None]
  - LOSS OF CONSCIOUSNESS [None]
  - PULMONARY OEDEMA [None]
  - RENAL FAILURE [None]
  - SUFFOCATION FEELING [None]
